FAERS Safety Report 8476495-3 (Version None)
Quarter: 2012Q2

REPORT INFORMATION
  Report Type: 
  Country: None (occurrence: None)
  Receive Date: 20120628
  Receipt Date: 20120621
  Transmission Date: 20120825
  Serious: Yes (Other)
  Sender: FDA-Public Use
  Company Number: US-UCBSA-059819

PATIENT
  Sex: Male
  Weight: 45.4 kg

DRUGS (7)
  1. WELCHOL [Concomitant]
     Indication: DIARRHOEA
     Route: 048
  2. ENTOCORT EC [Concomitant]
     Indication: CROHN'S DISEASE
     Route: 048
  3. LIBRAX [Concomitant]
     Indication: MUSCLE SPASMS
     Dosage: 5/2.5 MG
     Route: 048
  4. LOMOTIL [Concomitant]
     Indication: DIARRHOEA
     Route: 048
  5. CIMZIA [Suspect]
     Indication: CROHN'S DISEASE
     Route: 058
  6. LIBRAX [Concomitant]
     Indication: DIARRHOEA
     Dosage: 5/2.5 MG
     Route: 048
  7. REMICADE [Suspect]

REACTIONS (2)
  - STAPHYLOCOCCAL INFECTION [None]
  - THROMBOCYTOPENIA [None]
